FAERS Safety Report 4771174-8 (Version None)
Quarter: 2005Q3

REPORT INFORMATION
  Report Type: 
  Country: None (occurrence: None)
  Receive Date: 20050912
  Receipt Date: 20050607
  Transmission Date: 20060218
  Serious: No
  Sender: FDA-Public Use
  Company Number: 2005-01025

PATIENT
  Age: 36 Year
  Sex: Female
  Weight: 99.3 kg

DRUGS (10)
  1. VELCADE [Suspect]
     Indication: MULTIPLE MYELOMA
     Dosage: 2.00 MG, IV BOLUS
     Route: 040
     Dates: start: 20050101, end: 20050401
  2. VELCADE [Suspect]
     Indication: MULTIPLE MYELOMA
     Dosage: 2.00 MG, IV BOLUS
     Route: 040
     Dates: start: 20050509
  3. NEXIUM [Concomitant]
  4. INSULIN [Concomitant]
  5. HYDROCHLOROTHIAZIDE [Concomitant]
  6. ALDACTONE [Concomitant]
  7. NEURONTIN [Concomitant]
  8. ALLOPURINOL [Concomitant]
  9. FAMVIR [Concomitant]
  10. BACLOFEN [Concomitant]

REACTIONS (6)
  - ABDOMINAL DISCOMFORT [None]
  - ABDOMINAL PAIN [None]
  - ALANINE AMINOTRANSFERASE INCREASED [None]
  - ASPARTATE AMINOTRANSFERASE INCREASED [None]
  - GAMMA-GLUTAMYLTRANSFERASE INCREASED [None]
  - MUSCLE SPASMS [None]
